FAERS Safety Report 4622992-8 (Version None)
Quarter: 2005Q1

REPORT INFORMATION
  Report Type: 
  Country: None (occurrence: None)
  Receive Date: 20050329
  Receipt Date: 20020627
  Transmission Date: 20050727
  Serious: No
  Sender: FDA-Public Use
  Company Number: 3874

PATIENT
  Age: 20 Year
  Sex: Female

DRUGS (3)
  1. CYTARABINE [Suspect]
     Indication: ACUTE LYMPHOCYTIC LEUKAEMIA
     Dosage: INTRAVENOUS
     Route: 042
  2. METHOTREXATE [Suspect]
     Indication: ACUTE LYMPHOCYTIC LEUKAEMIA
     Dosage: IT
     Route: 038
  3. HYDROCORTISONE [Suspect]
     Indication: ACUTE LYMPHOCYTIC LEUKAEMIA
     Dosage: INTRAVENOUS
     Route: 042

REACTIONS (5)
  - AREFLEXIA [None]
  - ENCEPHALOPATHY [None]
  - HYPOTONIA [None]
  - MUTISM [None]
  - SOMNOLENCE [None]
